FAERS Safety Report 10223989 (Version 1)
Quarter: 2014Q2

REPORT INFORMATION
  Report Type: Spontaneous
  Country: MY (occurrence: MY)
  Receive Date: 20140609
  Receipt Date: 20140609
  Transmission Date: 20141212
  Serious: Yes (Other)
  Sender: FDA-Public Use
  Company Number: MY-ABBVIE-14P-101-1245348-00

PATIENT
  Age: 6 Month
  Sex: Female

DRUGS (2)
  1. KLACID [Suspect]
     Indication: ACUTE TONSILLITIS
     Route: 048
  2. PARACETAMOL [Concomitant]
     Indication: PRODUCT USED FOR UNKNOWN INDICATION

REACTIONS (3)
  - Angioedema [Recovered/Resolved]
  - Pruritus [Recovered/Resolved]
  - Rash maculo-papular [Recovered/Resolved]
